FAERS Safety Report 8760391 (Version 2)
Quarter: 2013Q4

REPORT INFORMATION
  Report Type: Report from Study
  Country: JP (occurrence: JP)
  Receive Date: 20120830
  Receipt Date: 20131106
  Transmission Date: 20140711
  Serious: Yes (Hospitalization)
  Sender: FDA-Public Use
  Company Number: JP-009507513-1208JPN007711

PATIENT
  Age: 65 Year
  Sex: Male
  Weight: 75 kg

DRUGS (11)
  1. PEGINTRON [Suspect]
     Indication: HEPATITIS C
     Dosage: 1.5 MICROGRAM PER KILOGRAM, QW
     Route: 058
     Dates: start: 20120207
  2. REBETOL [Suspect]
     Indication: HEPATITIS C
     Dosage: 800 MG, QD
     Route: 048
     Dates: start: 20120208, end: 20120213
  3. REBETOL [Suspect]
     Dosage: 1000 MG, QD
     Route: 048
     Dates: start: 20120214
  4. TELAVIC [Suspect]
     Indication: HEPATITIS C
     Dosage: 2250 MG, QD
     Route: 048
     Dates: start: 20120207, end: 20120212
  5. PREDONINE [Concomitant]
     Indication: PROPHYLAXIS
     Dosage: 30 MG, QD
     Route: 048
     Dates: start: 20120207, end: 20120207
  6. PREDONINE [Concomitant]
     Dosage: 10 MG, QD
     Route: 048
     Dates: start: 20120208, end: 20120228
  7. PREDONINE [Concomitant]
     Dosage: 5 MG, QD
     Route: 048
     Dates: start: 20120229, end: 20120605
  8. PREDONINE [Concomitant]
     Dosage: 2.5 MG, QD
     Route: 048
     Dates: start: 20120606
  9. TAKEPRON [Concomitant]
     Indication: PROPHYLAXIS
     Dosage: 15 MG, QD
     Route: 048
     Dates: start: 20120207
  10. ANPLAG [Concomitant]
     Dosage: 300 MG, QD
     Route: 048
     Dates: start: 20120721
  11. PROCYLIN [Concomitant]
     Dosage: 120 MG, QD
     Route: 048
     Dates: start: 20120721

REACTIONS (1)
  - Peripheral artery thrombosis [Not Recovered/Not Resolved]
